FAERS Safety Report 21255433 (Version 1)
Quarter: 2022Q3

REPORT INFORMATION
  Report Type: Spontaneous
  Country: US (occurrence: US)
  Receive Date: 20220825
  Receipt Date: 20220825
  Transmission Date: 20221026
  Serious: Yes (Death, Other)
  Sender: FDA-Public Use
  Company Number: US-PFIZER INC-202201062943

PATIENT

DRUGS (3)
  1. METHYLPREDNISOLONE ACETATE [Suspect]
     Active Substance: METHYLPREDNISOLONE ACETATE
     Dosage: UNK
  2. CYCLOPHOSPHAMIDE [Suspect]
     Active Substance: CYCLOPHOSPHAMIDE
     Dosage: UNK
  3. CYCLOSPORINE [Suspect]
     Active Substance: CYCLOSPORINE
     Dosage: UNK

REACTIONS (1)
  - Organising pneumonia [Fatal]
